FAERS Safety Report 7049774-4 (Version None)
Quarter: 2010Q4

REPORT INFORMATION
  Report Type: 
  Country: None (occurrence: None)
  Receive Date: 20101018
  Receipt Date: 20101004
  Transmission Date: 20110411
  Serious: Yes (Other)
  Sender: FDA-Public Use
  Company Number: US-ELI_LILLY_AND_COMPANY-US201009000793

PATIENT
  Age: 55 Year
  Sex: Female
  Weight: 74 kg

DRUGS (6)
  1. EFFIENT [Suspect]
     Indication: THROMBOSIS PROPHYLAXIS
     Dosage: 60 MG, OTHER
  2. EFFIENT [Suspect]
     Dosage: 10 MG, DAILY (1/D)
  3. ASPIRIN [Concomitant]
     Dosage: 325 MG, UNKNOWN
  4. COREG [Concomitant]
  5. NYSTATIN [Concomitant]
  6. PLAVIX [Concomitant]

REACTIONS (2)
  - DRUG INEFFECTIVE [None]
  - THROMBOSIS IN DEVICE [None]
